FAERS Safety Report 9354627 (Version 3)
Quarter: 2015Q1

REPORT INFORMATION
  Report Type: Report from Study
  Country: BR (occurrence: BR)
  Receive Date: 20130618
  Receipt Date: 20150216
  Transmission Date: 20150721
  Serious: Yes (Disabling, Other)
  Sender: FDA-Public Use
  Company Number: BR-ROCHE-1055642

PATIENT
  Age: 66 Year
  Sex: Female
  Weight: 85 kg

DRUGS (8)
  1. ARAVA [Concomitant]
     Active Substance: LEFLUNOMIDE
     Route: 065
  2. PREDNISONA [Concomitant]
     Active Substance: PREDNISONE
     Route: 065
  3. ACTEMRA [Suspect]
     Active Substance: TOCILIZUMAB
     Indication: RHEUMATOID ARTHRITIS
     Route: 042
     Dates: start: 20110502, end: 20111228
  4. ACTEMRA [Suspect]
     Active Substance: TOCILIZUMAB
     Dosage: PATIENT RECEIVED 35 INFUSIONS IN TOTAL
     Route: 042
     Dates: end: 201409
  5. REUQUINOL [Concomitant]
     Active Substance: HYDROXYCHLOROQUINE SULFATE
  6. FLOTAC (BRAZIL) [Concomitant]
  7. METHOTREXATE [Concomitant]
     Active Substance: METHOTREXATE
     Route: 065
  8. METFORMIN HYDROCHLORIDE. [Concomitant]
     Active Substance: METFORMIN HYDROCHLORIDE
     Route: 048

REACTIONS (17)
  - Rheumatic disorder [Recovered/Resolved]
  - Amnesia [Recovered/Resolved]
  - Foot deformity [Not Recovered/Not Resolved]
  - Rheumatic disorder [Not Recovered/Not Resolved]
  - Malaise [Recovered/Resolved]
  - Abasia [Not Recovered/Not Resolved]
  - Weight decreased [Unknown]
  - Influenza [Not Recovered/Not Resolved]
  - Pain [Unknown]
  - Sinusitis [Unknown]
  - Pain [Not Recovered/Not Resolved]
  - Loss of consciousness [Recovered/Resolved]
  - Hypertension [Not Recovered/Not Resolved]
  - Diabetes mellitus [Not Recovered/Not Resolved]
  - Asthenia [Recovered/Resolved]
  - Nasopharyngitis [Recovered/Resolved]
  - Feeding disorder [Recovered/Resolved]

NARRATIVE: CASE EVENT DATE: 201201
